FAERS Safety Report 6896345-6 (Version None)
Quarter: 2010Q3

REPORT INFORMATION
  Report Type: 
  Country: None (occurrence: None)
  Receive Date: 20100802
  Receipt Date: 20100720
  Transmission Date: 20110219
  Serious: No
  Sender: FDA-Public Use
  Company Number: US-B.I. PHARMACEUTICALS,INC./RIDGEFIELD-2010-BP-07393BP

PATIENT
  Sex: Female

DRUGS (4)
  1. SPIRIVA [Suspect]
     Indication: EMPHYSEMA
     Dosage: 18 MCG
     Route: 055
     Dates: start: 20100605
  2. SPIRIVA [Suspect]
     Indication: ASTHMA
  3. FLOVENT [Concomitant]
     Indication: EMPHYSEMA
  4. FLOVENT [Concomitant]
     Indication: ASTHMA

REACTIONS (2)
  - DRY MOUTH [None]
  - SINUS CONGESTION [None]
